FAERS Safety Report 13663015 (Version 1)
Quarter: 2017Q2

REPORT INFORMATION
  Report Type: Spontaneous
  Country: US (occurrence: US)
  Receive Date: 20170619
  Receipt Date: 20170619
  Transmission Date: 20170830
  Serious: No
  Sender: FDA-Public Use
  Company Number: US-ASTRAZENECA-2017SE62996

PATIENT
  Sex: Female

DRUGS (1)
  1. CANDESARTAN CILEXETIL-HYDROCHLOROTHIAZIDE [Suspect]
     Active Substance: CANDESARTAN CILEXETIL\HYDROCHLOROTHIAZIDE
     Dosage: GENERIC, 32 MILLIGRAMS +12.5 MILLIGRAMS, FREQUENCY UNKNOWN
     Route: 048

REACTIONS (1)
  - Nervousness [Unknown]
